FAERS Safety Report 24106479 (Version 1)
Quarter: 2024Q3

REPORT INFORMATION
  Report Type: Spontaneous
  Country: US (occurrence: US)
  Receive Date: 20240717
  Receipt Date: 20240717
  Transmission Date: 20241016
  Serious: No
  Sender: AVERITAS
  Company Number: US-GRUNENTHAL-2023-113208

PATIENT
  Age: 30 Year
  Sex: Male

DRUGS (4)
  1. QUTENZA [Suspect]
     Active Substance: CAPSAICIN
     Indication: Neuralgia
     Dosage: 4 DOSAGE FORM, ONCE
     Route: 061
     Dates: start: 202103, end: 202103
  2. QUTENZA [Suspect]
     Active Substance: CAPSAICIN
     Dosage: 4 DOSAGE FORM, ONCE
     Route: 061
     Dates: start: 202106, end: 202106
  3. QUTENZA [Suspect]
     Active Substance: CAPSAICIN
     Dosage: UNK
     Route: 061
     Dates: start: 202109, end: 202109
  4. QUTENZA [Suspect]
     Active Substance: CAPSAICIN
     Dosage: UNK
     Route: 061
     Dates: start: 202112, end: 202112

REACTIONS (2)
  - Erythema [Recovering/Resolving]
  - Off label use [Unknown]
